FAERS Safety Report 11104663 (Version 1)
Quarter: 2015Q2

REPORT INFORMATION
  Report Type: Spontaneous
  Country: US (occurrence: US)
  Receive Date: 20150511
  Receipt Date: 20150511
  Transmission Date: 20150821
  Serious: No
  Sender: FDA-Public Use
  Company Number: US-ENDO PHARMACEUTICALS INC.-201404012

PATIENT
  Age: 59 Year
  Weight: 81.72 kg

DRUGS (3)
  1. ASPIRIN. [Concomitant]
     Active Substance: ASPIRIN
  2. FLUTICASONE [Concomitant]
     Active Substance: FLUTICASONE\FLUTICASONE PROPIONATE
  3. SEMPREX-D [Suspect]
     Active Substance: ACRIVASTINE\PSEUDOEPHEDRINE HYDROCHLORIDE
     Dosage: 1 CAPSULE TWICE DAILY AS NEEDED
     Route: 048

REACTIONS (7)
  - Nasopharyngitis [Unknown]
  - Product quality issue [Unknown]
  - Ocular hyperaemia [Unknown]
  - Nasal congestion [Unknown]
  - Hypertension [Recovered/Resolved]
  - Drug ineffective [Recovered/Resolved]
  - Eye pruritus [Unknown]
